FAERS Safety Report 10173454 (Version 1)
Quarter: 2014Q2

REPORT INFORMATION
  Report Type: Spontaneous
  Country: US (occurrence: US)
  Receive Date: 20140515
  Receipt Date: 20140515
  Transmission Date: 20141212
  Serious: No
  Sender: FDA-Public Use
  Company Number: US-TEVA-481918USA

PATIENT
  Age: 37 Year
  Sex: Female
  Weight: 81.72 kg

DRUGS (1)
  1. PLAN B ONE-STEP [Suspect]
     Indication: POST COITAL CONTRACEPTION
     Dosage: 1.5 MILLIGRAM DAILY;
     Route: 048
     Dates: start: 20140422, end: 20140422

REACTIONS (3)
  - Breast discomfort [Not Recovered/Not Resolved]
  - Breast disorder [Not Recovered/Not Resolved]
  - Breast tenderness [Not Recovered/Not Resolved]
